FAERS Safety Report 16770536 (Version 1)
Quarter: 2019Q3

REPORT INFORMATION
  Report Type: Spontaneous
  Country: NL (occurrence: NL)
  Receive Date: 20190904
  Receipt Date: 20190904
  Transmission Date: 20191005
  Serious: Yes (Other)
  Sender: FDA-Public Use
  Company Number: NL-ACCORD-153748

PATIENT
  Age: 63 Year
  Sex: Male
  Weight: 75 kg

DRUGS (2)
  1. QUETIAPINE. [Suspect]
     Active Substance: QUETIAPINE
     Indication: MANIA
     Dosage: STRENGTH 400 MG 1 X PER DAY 2 PIECES OF 200 MG
     Dates: start: 2016
  2. LITHIUM. [Suspect]
     Active Substance: LITHIUM
     Indication: BIPOLAR DISORDER
     Dosage: 1 PER DAY 1100 MG, STRENGH 400 MG
     Dates: start: 2012

REACTIONS (8)
  - Urinary incontinence [Not Recovered/Not Resolved]
  - Urinary retention [Not Recovered/Not Resolved]
  - Renal impairment [Not Recovered/Not Resolved]
  - Dysuria [Not Recovered/Not Resolved]
  - Head discomfort [Not Recovered/Not Resolved]
  - Hypothyroidism [Not Recovered/Not Resolved]
  - Diabetes insipidus [Not Recovered/Not Resolved]
  - Renal failure [Not Recovered/Not Resolved]

NARRATIVE: CASE EVENT DATE: 2018
